FAERS Safety Report 6617484-0 (Version None)
Quarter: 2010Q1

REPORT INFORMATION
  Report Type: 
  Country: None (occurrence: None)
  Receive Date: 20100308
  Receipt Date: 20100225
  Transmission Date: 20100710
  Serious: Yes (Other)
  Sender: FDA-Public Use
  Company Number: US-JNJFOC-20100300683

PATIENT
  Sex: Female

DRUGS (3)
  1. TYLENOL [Suspect]
  2. TYLENOL [Suspect]
     Indication: RHEUMATOID ARTHRITIS
  3. TYLENOL PM [Concomitant]
     Indication: DRUG USE FOR UNKNOWN INDICATION

REACTIONS (6)
  - ABDOMINAL PAIN UPPER [None]
  - CONSTIPATION [None]
  - DIARRHOEA [None]
  - DIZZINESS [None]
  - PRODUCT QUALITY ISSUE [None]
  - WEIGHT INCREASED [None]
